FAERS Safety Report 10085966 (Version 1)
Quarter: 2014Q2

REPORT INFORMATION
  Report Type: Spontaneous
  Country: IT (occurrence: None)
  Receive Date: 20140416
  Receipt Date: 20140416
  Transmission Date: 20141212
  Serious: Yes (Hospitalization)
  Sender: FDA-Public Use
  Company Number: FK201401300

PATIENT
  Age: 42 Year
  Sex: Female

DRUGS (1)
  1. METHOTREXATE [Suspect]
     Indication: ECTOPIC PREGNANCY
     Route: 030

REACTIONS (7)
  - Off label use [None]
  - Vaginal haemorrhage [None]
  - Muscle spasms [None]
  - Therapy responder [None]
  - Pyrexia [None]
  - Gastrointestinal disorder [None]
  - Haemoglobin decreased [None]
